FAERS Safety Report 7334130-1 (Version None)
Quarter: 2011Q1

REPORT INFORMATION
  Report Type: 
  Country: None (occurrence: None)
  Receive Date: 20110302
  Receipt Date: 20110302
  Transmission Date: 20110831
  Serious: No
  Sender: FDA-Public Use
  Company Number: None

PATIENT
  Age: 49 Year
  Sex: Female
  Weight: 93.441 kg

DRUGS (1)
  1. CAPAXONE [Suspect]
     Indication: MULTIPLE SCLEROSIS
     Dosage: 20MG QD SQ
     Dates: start: 20070101

REACTIONS (4)
  - SWELLING FACE [None]
  - PRURITUS [None]
  - EYELID OEDEMA [None]
  - THROAT TIGHTNESS [None]
